FAERS Safety Report 6582629-8 (Version None)
Quarter: 2010Q1

REPORT INFORMATION
  Report Type: 
  Country: None (occurrence: None)
  Receive Date: 20100203
  Receipt Date: 20100126
  Transmission Date: 20100710
  Serious: Yes (Hospitalization)
  Sender: FDA-Public Use
  Company Number: 1000008589

PATIENT
  Age: 64 Year
  Sex: Female

DRUGS (2)
  1. THYROID TAB [Suspect]
     Indication: HYPOTHYROIDISM
     Dosage: 90 MG (90 MG, 1 IN 1 D), PER ORAL
     Route: 048
     Dates: start: 19990101, end: 20100123
  2. ALPRAZOLAM          (0.5 MILLIGRAM) [Concomitant]

REACTIONS (10)
  - ATRIAL FIBRILLATION [None]
  - BLOOD PRESSURE INCREASED [None]
  - CHEST DISCOMFORT [None]
  - DIZZINESS [None]
  - GASTROOESOPHAGEAL REFLUX DISEASE [None]
  - HEADACHE [None]
  - HYPERHIDROSIS [None]
  - HYPERTENSION [None]
  - NERVOUSNESS [None]
  - PALPITATIONS [None]
